FAERS Safety Report 13659191 (Version 3)
Quarter: 2017Q2

REPORT INFORMATION
  Report Type: Spontaneous
  Country: US (occurrence: US)
  Receive Date: 20170616
  Receipt Date: 20170622
  Transmission Date: 20170830
  Serious: Yes (Other)
  Sender: FDA-Public Use
  Company Number: US-TEVA-777673USA

PATIENT
  Age: 69 Year
  Sex: Female

DRUGS (1)
  1. COPAXONE [Suspect]
     Active Substance: GLATIRAMER ACETATE
     Indication: MULTIPLE SCLEROSIS
     Route: 058
     Dates: start: 20140321

REACTIONS (10)
  - Vomiting [Recovering/Resolving]
  - Nausea [Recovering/Resolving]
  - Cholelithiasis [Unknown]
  - Hiatus hernia [Unknown]
  - Muscle spasms [Recovering/Resolving]
  - Spinal osteoarthritis [Unknown]
  - Diarrhoea [Recovering/Resolving]
  - Diverticulitis [Recovering/Resolving]
  - Chills [Recovering/Resolving]
  - Abdominal pain upper [Recovering/Resolving]

NARRATIVE: CASE EVENT DATE: 20170529
